FAERS Safety Report 6735235-6 (Version None)
Quarter: 2010Q2

REPORT INFORMATION
  Report Type: 
  Country: None (occurrence: None)
  Receive Date: 20100520
  Receipt Date: 20100520
  Transmission Date: 20101027
  Serious: No
  Sender: FDA-Public Use
  Company Number: None

PATIENT
  Age: 53 Year
  Sex: Female
  Weight: 89.3586 kg

DRUGS (1)
  1. EST ESTRGN METHTEST [Suspect]
     Indication: MENOPAUSAL SYMPTOMS
     Dosage: BEGAN WITH TWO PER DAY ADJUSTED LATER TO ONE PER DAY
     Dates: start: 20080601, end: 20100319

REACTIONS (2)
  - ABDOMINAL PAIN UPPER [None]
  - CYST [None]
